FAERS Safety Report 11107147 (Version 5)
Quarter: 2015Q3

REPORT INFORMATION
  Report Type: Spontaneous
  Country: IT (occurrence: IT)
  Receive Date: 20150512
  Receipt Date: 20150709
  Transmission Date: 20151125
  Serious: Yes (Death)
  Sender: FDA-Public Use
  Company Number: IT-ROCHE-1572710

PATIENT
  Age: 67 Year
  Sex: Female

DRUGS (9)
  1. CARDICOR [Concomitant]
     Active Substance: BISOPROLOL
     Route: 065
     Dates: start: 201504
  2. CLEXANE [Concomitant]
     Active Substance: ENOXAPARIN SODIUM
  3. LANSOPRAZOLE. [Concomitant]
     Active Substance: LANSOPRAZOLE
     Route: 065
  4. NAVELBINE [Suspect]
     Active Substance: VINORELBINE TARTRATE
     Indication: HER-2 POSITIVE BREAST CANCER
     Route: 042
     Dates: start: 20150424, end: 20150424
  5. PRAVASTATIN [Concomitant]
     Active Substance: PRAVASTATIN\PRAVASTATIN SODIUM
     Indication: HYPERCHOLESTEROLAEMIA
     Route: 065
  6. CHOLECALCIFEROL [Concomitant]
     Active Substance: CHOLECALCIFEROL
     Indication: VITAMIN D DEFICIENCY
     Dosage: 35 DROPS
     Route: 065
  7. PREDNISONE. [Concomitant]
     Active Substance: PREDNISONE
     Route: 065
  8. TRIATEC (ITALY) [Concomitant]
     Active Substance: RAMIPRIL
     Route: 065
  9. HERCEPTIN [Suspect]
     Active Substance: TRASTUZUMAB
     Indication: HER-2 POSITIVE BREAST CANCER
     Dosage: LOADING DOSE 240MG TOTAL
     Route: 042
     Dates: start: 20150424, end: 20150424

REACTIONS (5)
  - Tremor [Fatal]
  - Neurological decompensation [Fatal]
  - Migraine [Fatal]
  - Coma [Fatal]
  - Cognitive disorder [Fatal]

NARRATIVE: CASE EVENT DATE: 20150424
